FAERS Safety Report 17691698 (Version 1)
Quarter: 2020Q2

REPORT INFORMATION
  Report Type: Spontaneous
  Country: US (occurrence: US)
  Receive Date: 20200422
  Receipt Date: 20200422
  Transmission Date: 20200714
  Serious: No
  Sender: FDA-Public Use
  Company Number: US-BAUSCH-BL-2020-009549

PATIENT
  Age: 78 Year
  Sex: Female

DRUGS (2)
  1. SOOTHE XP [Suspect]
     Active Substance: LIGHT MINERAL OIL\MINERAL OIL
     Indication: DRY EYE
     Dosage: STARTED TWO AND HALF WEEKS PRIOR, AS NEEDED
     Route: 047
     Dates: start: 202003
  2. LATANOPROST OPHTHALMIC SOLUTION 0.005% [Suspect]
     Active Substance: LATANOPROST
     Indication: GLAUCOMA
     Route: 047
     Dates: start: 2019

REACTIONS (5)
  - Foreign body sensation in eyes [Unknown]
  - Condition aggravated [Not Recovered/Not Resolved]
  - Dry eye [Not Recovered/Not Resolved]
  - Drug ineffective [Unknown]
  - Product dropper issue [Unknown]

NARRATIVE: CASE EVENT DATE: 202003
